FAERS Safety Report 4276325-X (Version None)
Quarter: 2004Q1

REPORT INFORMATION
  Report Type: 
  Country: None (occurrence: None)
  Receive Date: 20040120
  Receipt Date: 20040120
  Transmission Date: 20041129
  Serious: Yes (Hospitalization)
  Sender: FDA-Public Use
  Company Number: None

PATIENT
  Age: 74 Year
  Sex: Male
  Weight: 101.6057 kg

DRUGS (24)
  1. HUMULIN 70/30 [Suspect]
     Indication: DIABETES MELLITUS
     Dosage: 50 UNITS AM 40 UNITS PM
     Dates: start: 20030904, end: 20031006
  2. ACCU-CHEK COMFORT CV (GLUCOSE) TEST STRIP [Concomitant]
  3. ACETAMINOPHEN 300/CODEINE [Concomitant]
  4. ALCOHOL PREP PAD [Concomitant]
  5. AMMONIUM LACTATE [Concomitant]
  6. BRIEF, FITTED X-LARGE EXTRA ABSORBENT [Concomitant]
  7. CALCIUM POLYCARBOPHIL [Concomitant]
  8. CLOTRIMAZOLE [Concomitant]
  9. LANOXIN [Concomitant]
  10. FLUOXETINE HCL [Concomitant]
  11. FOSINOPRIL NA [Concomitant]
  12. HYDROCHLOROTHIAZIDE [Concomitant]
  13. NOVOLIN 70/30 [Concomitant]
  14. INSULIN SYRINGE [Concomitant]
  15. ISOSORBIDE DINITRATE [Concomitant]
  16. KETOROLAC TROMETHAMINE [Concomitant]
  17. LANCET, TECHLITE [Concomitant]
  18. METFORMIN HCL [Concomitant]
  19. METOPROLOL TARTRATE [Concomitant]
  20. RANITIDINE HCL [Concomitant]
  21. SENNOSIDES [Concomitant]
  22. SIMVASTATIN [Concomitant]
  23. TRIAMCINOLONE ACETONIDE [Concomitant]
  24. COUMADIN [Concomitant]

REACTIONS (2)
  - COMA [None]
  - HYPOGLYCAEMIA [None]
